FAERS Safety Report 24822345 (Version 4)
Quarter: 2025Q4

REPORT INFORMATION
  Report Type: Report from Study
  Country: JP (occurrence: JP)
  Receive Date: 20250108
  Receipt Date: 20251112
  Transmission Date: 20260118
  Serious: Yes (Hospitalization, Other)
  Sender: BIOGEN
  Company Number: JP-BIOGEN-2024BI01257957

PATIENT
  Age: 18 Year
  Sex: Male
  Weight: 26.3 kg

DRUGS (7)
  1. SPINRAZA [Suspect]
     Active Substance: NUSINERSEN
     Indication: Spinal muscular atrophy
  2. SPINRAZA [Suspect]
     Active Substance: NUSINERSEN
     Dosage: FREQUENCY TEXT:INTERVALS OF 4 MONTHS AND 5 MONTHS
  3. SPINRAZA [Suspect]
     Active Substance: NUSINERSEN
  4. SPINRAZA [Suspect]
     Active Substance: NUSINERSEN
  5. SPINRAZA [Suspect]
     Active Substance: NUSINERSEN
     Dates: start: 20250416
  6. LIDOCAINE [Concomitant]
     Active Substance: LIDOCAINE
     Indication: Anaesthesia procedure
     Dosage: FREQUENCY TEXT:AT EACH SPINRAZA ADMINISTRATION
  7. PROPITOCAINE HYDROCHLORIDE [Concomitant]
     Indication: Anaesthesia procedure
     Dosage: FREQUENCY TEXT:AT EACH SPINRAZA ADMINISTRATION

REACTIONS (2)
  - Scoliosis [Not Recovered/Not Resolved]
  - Pneumonia aspiration [Recovered/Resolved]

NARRATIVE: CASE EVENT DATE: 20241127
